FAERS Safety Report 8609220-3 (Version None)
Quarter: 2012Q3

REPORT INFORMATION
  Report Type: 
  Country: None (occurrence: None)
  Receive Date: 20120808
  Receipt Date: 20120724
  Transmission Date: 20120928
  Serious: Yes (Hospitalization)
  Sender: FDA-Public Use
  Company Number: 2012MA009512

PATIENT
  Age: 71 Year
  Sex: Female

DRUGS (7)
  1. LANSOPRAZOLE [Concomitant]
  2. RAMIPRIL [Concomitant]
  3. AMLODIPINE [Concomitant]
  4. BUTRANS [Concomitant]
  5. SOLIFENACIN SUCCINATE [Concomitant]
  6. TOLTERODINE TARTRATE [Concomitant]
  7. GABAPENTIN [Suspect]
     Indication: OSTEOARTHRITIS
     Dosage: 300 MG
     Dates: end: 20120706

REACTIONS (3)
  - HIP ARTHROPLASTY [None]
  - PNEUMONIA [None]
  - URINARY TRACT INFECTION [None]
